FAERS Safety Report 8820328 (Version 1)
Quarter: 2012Q4

REPORT INFORMATION
  Report Type: 
  Country: US (occurrence: US)
  Receive Date: 20121002
  Receipt Date: 20121002
  Transmission Date: 20130627
  Serious: Yes (Other)
  Sender: FDA-Public Use
  Company Number: US-BIOGENIDEC-2012BI040464

PATIENT

DRUGS (1)
  1. AVONEX [Suspect]
     Indication: PRODUCT USED FOR UNKNOWN INDICATION
     Route: 030
     Dates: start: 201105, end: 201206

REACTIONS (4)
  - Ejection fraction decreased [Unknown]
  - Multiple sclerosis [Unknown]
  - Type 2 diabetes mellitus [Unknown]
  - Obesity [Unknown]
